FAERS Safety Report 6756404-5 (Version None)
Quarter: 2010Q2

REPORT INFORMATION
  Report Type: 
  Country: None (occurrence: None)
  Receive Date: 20100604
  Receipt Date: 20100528
  Transmission Date: 20101027
  Serious: Yes (Life-Threatening, Hospitalization)
  Sender: FDA-Public Use
  Company Number: ES-CELGENEUS-144-C5013-10030133

PATIENT
  Sex: Female
  Weight: 55 kg

DRUGS (11)
  1. CC-5013 [Suspect]
     Indication: MULTIPLE MYELOMA
     Route: 048
     Dates: start: 20100201, end: 20100221
  2. CC-5013 [Suspect]
     Route: 048
     Dates: start: 20090907
  3. CC-5013 [Suspect]
     Route: 048
     Dates: start: 20100517
  4. CC-5013 [Suspect]
     Route: 048
     Dates: end: 20100301
  5. DEXAMETHASONE [Suspect]
     Indication: MULTIPLE MYELOMA
     Route: 048
     Dates: start: 20100201, end: 20100228
  6. DEXAMETHASONE [Suspect]
     Route: 048
     Dates: start: 20090907
  7. DEXAMETHASONE [Suspect]
     Route: 048
     Dates: end: 20100301
  8. DEXAMETHASONE [Suspect]
     Route: 048
     Dates: start: 20100517
  9. SEGURIL [Concomitant]
     Route: 065
  10. SALICYLIC ACID [Concomitant]
     Indication: THROMBOSIS PROPHYLAXIS
     Route: 048
     Dates: start: 20090907, end: 20100413
  11. SALICYLIC ACID [Concomitant]
     Route: 048
     Dates: start: 20100423

REACTIONS (1)
  - WHIPPLE'S DISEASE [None]
